FAERS Safety Report 15568794 (Version 4)
Quarter: 2019Q1

REPORT INFORMATION
  Report Type: Report from Study
  Country: None (occurrence: US)
  Receive Date: 20181031
  Receipt Date: 20190212
  Transmission Date: 20190417
  Serious: Yes (Other)
  Sender: FDA-Public Use
  Company Number: US-ABBVIE-18K-163-2535252-00

PATIENT
  Age: 70 Year
  Sex: Female
  Weight: 83.99 kg

DRUGS (3)
  1. HUMIRA [Suspect]
     Active Substance: ADALIMUMAB
     Indication: COLITIS ULCERATIVE
  2. ASPIRIN. [Suspect]
     Active Substance: ASPIRIN
     Indication: CEREBROVASCULAR ACCIDENT PROPHYLAXIS
     Route: 048
     Dates: start: 2012
  3. HUMIRA [Suspect]
     Active Substance: ADALIMUMAB
     Indication: COLITIS ULCERATIVE
     Dosage: 2016 OR 2017
     Route: 058
     Dates: end: 20181120

REACTIONS (8)
  - Respiratory tract congestion [Unknown]
  - Flatulence [Not Recovered/Not Resolved]
  - Hiatus hernia [Not Recovered/Not Resolved]
  - Aphonia [Unknown]
  - Increased tendency to bruise [Not Recovered/Not Resolved]
  - Colitis ulcerative [Recovered/Resolved]
  - Throat irritation [Unknown]
  - Dyspnoea [Not Recovered/Not Resolved]

NARRATIVE: CASE EVENT DATE: 2016
